FAERS Safety Report 5075231-0 (Version None)
Quarter: 2006Q3

REPORT INFORMATION
  Report Type: 
  Country: None (occurrence: None)
  Receive Date: 20060809
  Receipt Date: 20060721
  Transmission Date: 20061208
  Serious: Yes (Other)
  Sender: FDA-Public Use
  Company Number: PHBS2006IE10996

PATIENT
  Sex: Female

DRUGS (8)
  1. VOLTAREN [Suspect]
     Indication: POSTOPERATIVE CARE
     Route: 042
  2. MORPHINE [Concomitant]
     Route: 042
  3. MIDAZOLAM HYDROCHLORIDE [Concomitant]
  4. FENTANYL [Concomitant]
  5. PROPOFOL [Concomitant]
  6. OXYGEN [Concomitant]
  7. LABETALOL HCL [Concomitant]
     Indication: HYPERTENSION
  8. SEVOFLURANE [Concomitant]

REACTIONS (10)
  - ANAPHYLACTIC REACTION [None]
  - ANGIONEUROTIC OEDEMA [None]
  - BRADYCARDIA [None]
  - BRONCHOSPASM [None]
  - FLUSHING [None]
  - HYPOTENSION [None]
  - OXYGEN SATURATION DECREASED [None]
  - RASH [None]
  - TACHYCARDIA [None]
  - TRYPTASE INCREASED [None]
